FAERS Safety Report 7347935-8 (Version None)
Quarter: 2011Q1

REPORT INFORMATION
  Report Type: 
  Country: None (occurrence: None)
  Receive Date: 20110311
  Receipt Date: 20100916
  Transmission Date: 20110831
  Serious: Yes (Death)
  Sender: FDA-Public Use
  Company Number: US-BAYER-201017741NA

PATIENT
  Sex: Female
  Weight: 90.703 kg

DRUGS (8)
  1. COUGH SYRUP [Concomitant]
     Indication: NASOPHARYNGITIS
     Dosage: UNK
     Dates: start: 20060228, end: 20060319
  2. YASMIN [Suspect]
     Indication: CONTRACEPTION
     Dosage: UNK
     Route: 048
     Dates: start: 20041001, end: 20060221
  3. PAXIL [Concomitant]
     Indication: DEPRESSION
     Dosage: UNK
     Dates: start: 20000101
  4. PHENTERMINE [Concomitant]
     Indication: WEIGHT DECREASED
     Dosage: UNK
     Dates: start: 20030101, end: 20050101
  5. YASMIN [Suspect]
     Indication: MENSTRUATION IRREGULAR
  6. SYNTHROID [Concomitant]
     Dosage: 200 UNK, UNK
     Dates: start: 20030101, end: 20060101
  7. BEXTRA [Concomitant]
     Dosage: UNK
     Dates: start: 20040101
  8. NSAID'S [Concomitant]
     Dosage: UNK
     Dates: start: 20060201, end: 20060301

REACTIONS (1)
  - PULMONARY EMBOLISM [None]
